FAERS Safety Report 6031752-5 (Version None)
Quarter: 2008Q4

REPORT INFORMATION
  Report Type: 
  Country: None (occurrence: None)
  Receive Date: 20081224
  Receipt Date: 20081020
  Transmission Date: 20090506
  Serious: No
  Sender: FDA-Public Use
  Company Number: 2008PV035807

PATIENT
  Age: 74 Year
  Sex: Female
  Weight: 122.4712 kg

DRUGS (5)
  1. SYMLIN [Suspect]
     Indication: TYPE 2 DIABETES MELLITUS
     Dosage: 120 MCG; ; SC, 60 MCG; ; SC, 30 MCG; ; SC
     Route: 058
     Dates: start: 20071001, end: 20080101
  2. SYMLIN [Suspect]
     Indication: TYPE 2 DIABETES MELLITUS
     Dosage: 120 MCG; ; SC, 60 MCG; ; SC, 30 MCG; ; SC
     Route: 058
     Dates: start: 20080101, end: 20080401
  3. SYMLIN [Suspect]
     Indication: TYPE 2 DIABETES MELLITUS
     Dosage: 120 MCG; ; SC, 60 MCG; ; SC, 30 MCG; ; SC
     Route: 058
     Dates: start: 20080401, end: 20080701
  4. HUMALOG [Concomitant]
  5. LANTUS [Concomitant]

REACTIONS (3)
  - BLOOD GLUCOSE DECREASED [None]
  - BLOOD GLUCOSE INCREASED [None]
  - WRONG TECHNIQUE IN DRUG USAGE PROCESS [None]
